FAERS Safety Report 8405702 (Version 2)
Quarter: 2012Q4

REPORT INFORMATION
  Report Type: 
  Country: US (occurrence: US)
  Receive Date: 20120214
  Receipt Date: 20121226
  Transmission Date: 20130627
  Serious: Yes (Hospitalization, Congenital Anomaly, Other)
  Sender: FDA-Public Use
  Company Number: US-PFIZER INC-2012036828

PATIENT
  Sex: Male

DRUGS (6)
  1. ZOLOFT [Suspect]
     Indication: DEPRESSION
     Dosage: UNK
     Route: 064
     Dates: start: 200110, end: 200511
  2. PRENATAL VITAMINS [Concomitant]
     Dosage: UNK
     Route: 064
  3. SINGULAIR [Concomitant]
     Dosage: UNK
     Route: 064
  4. MAXALT [Concomitant]
     Dosage: UNK
     Route: 064
  5. IMITREX [Concomitant]
     Dosage: UNK
     Route: 064
  6. CRESTOR [Concomitant]
     Dosage: UNK
     Route: 064

REACTIONS (3)
  - Maternal exposure timing unspecified [Unknown]
  - Craniosynostosis [Unknown]
  - Congenital anomaly [Unknown]
